FAERS Safety Report 4529880-6 (Version None)
Quarter: 2004Q4

REPORT INFORMATION
  Report Type: 
  Country: None (occurrence: None)
  Receive Date: 20041214
  Receipt Date: 20041201
  Transmission Date: 20050328
  Serious: Yes (Hospitalization)
  Sender: FDA-Public Use
  Company Number: 2004-BP-13073BP

PATIENT
  Age: 51 Year
  Sex: Female

DRUGS (1)
  1. ATROVENT [Suspect]
     Indication: CHRONIC OBSTRUCTIVE AIRWAYS DISEASE
     Dosage: 72 MCG (18 MCG, 2 PUFFS BID), IH
     Route: 055

REACTIONS (4)
  - ASTHENIA [None]
  - DYSPNOEA [None]
  - MALAISE [None]
  - MEDICATION ERROR [None]
